FAERS Safety Report 4685163-5 (Version None)
Quarter: 2005Q2

REPORT INFORMATION
  Report Type: 
  Country: None (occurrence: None)
  Receive Date: 20050607
  Receipt Date: 20050302
  Transmission Date: 20051028
  Serious: Yes (Death)
  Sender: FDA-Public Use
  Company Number: 2005S1000924

PATIENT
  Age: 46 Year
  Sex: Male

DRUGS (4)
  1. CLOZAPINE [Suspect]
     Indication: SCHIZOAFFECTIVE DISORDER
     Dosage: 500 MG; HS; PO
     Route: 048
     Dates: start: 20031008, end: 20050201
  2. BUSPAR [Suspect]
     Dosage: 15 MG; BID; PO
     Route: 048
     Dates: start: 20030701, end: 20050201
  3. PAXIL [Suspect]
     Dosage: 30 MG; BID;
     Dates: start: 20030701, end: 20050201
  4. TIAGABINE HYDROCHLORIDE [Concomitant]

REACTIONS (1)
  - CONVULSION [None]
